FAERS Safety Report 7348008-0 (Version None)
Quarter: 2011Q1

REPORT INFORMATION
  Report Type: 
  Country: None (occurrence: None)
  Receive Date: 20110311
  Receipt Date: 20110302
  Transmission Date: 20110831
  Serious: Yes (Hospitalization, Other)
  Sender: FDA-Public Use
  Company Number: US-ASTRAZENECA-2010SE14917

PATIENT
  Age: 43 Year
  Sex: Male
  Weight: 81.6 kg

DRUGS (11)
  1. SEROQUEL [Suspect]
     Route: 048
     Dates: start: 20080101
  2. SEROQUEL [Suspect]
     Dosage: TAKING ONE TABLET INSTEAD OF TWO
     Route: 048
  3. SEROQUEL [Suspect]
     Route: 048
  4. SEROQUEL [Suspect]
     Indication: BIPOLAR DISORDER
     Route: 048
  5. SEROQUEL [Suspect]
     Route: 048
  6. COUMADIN [Concomitant]
     Indication: ANTICOAGULANT THERAPY
  7. VICODIN [Concomitant]
     Indication: PAIN
  8. SEROQUEL [Suspect]
     Dosage: TAKING TWO TABLETS AS PRESCRIBED
     Route: 048
  9. METFORMIN [Concomitant]
     Indication: GLUCOSE TOLERANCE IMPAIRED
  10. NEXIUM [Concomitant]
     Indication: GASTROOESOPHAGEAL REFLUX DISEASE
     Route: 048
  11. SEROQUEL [Suspect]
     Dosage: HALF THE PILL
     Route: 048
     Dates: start: 20090102

REACTIONS (13)
  - HYPERSOMNIA [None]
  - WEIGHT DECREASED [None]
  - IMPAIRED DRIVING ABILITY [None]
  - PANIC ATTACK [None]
  - IMPAIRED WORK ABILITY [None]
  - HOSPITALISATION [None]
  - ROAD TRAFFIC ACCIDENT [None]
  - WRONG DRUG ADMINISTERED [None]
  - DRUG DOSE OMISSION [None]
  - FEELING ABNORMAL [None]
  - MOOD SWINGS [None]
  - RESTLESS LEGS SYNDROME [None]
  - UNDERDOSE [None]
